FAERS Safety Report 16995032 (Version 6)
Quarter: 2020Q4

REPORT INFORMATION
  Report Type: Report from Study
  Country: US (occurrence: US)
  Receive Date: 20191105
  Receipt Date: 20201013
  Transmission Date: 20210113
  Serious: Yes (Hospitalization, Other)
  Sender: FDA-Public Use
  Company Number: US-INCYTE CORPORATION-2019IN010829

PATIENT

DRUGS (25)
  1. JAKAFI [Suspect]
     Active Substance: RUXOLITINIB
     Dosage: 5 MILLIGRAM, BID
     Route: 065
     Dates: start: 20190928, end: 20191024
  2. ALBUTEROL [SALBUTAMOL] [Concomitant]
     Active Substance: ALBUTEROL
     Indication: DYSPNOEA
     Dosage: 90 MICROGRAM, PRN
     Route: 065
     Dates: start: 20171218
  3. JAKAFI [Suspect]
     Active Substance: RUXOLITINIB
     Dosage: 5 MILLIGRAM, BID
     Route: 065
     Dates: start: 20180723, end: 20190116
  4. WARFARIN [Concomitant]
     Active Substance: WARFARIN
     Indication: ESSENTIAL THROMBOCYTHAEMIA
     Dosage: 5 MG, 10 MG
     Route: 065
     Dates: start: 20171110
  5. FAMOTIDINE. [Concomitant]
     Active Substance: FAMOTIDINE
     Indication: GASTROOESOPHAGEAL REFLUX DISEASE
     Dosage: 10 MILLIGRAM, BID
     Route: 065
     Dates: start: 20160804
  6. TOPIRAMATE. [Concomitant]
     Active Substance: TOPIRAMATE
     Indication: HEADACHE
     Dosage: 25 MILLIGRAM, BID
     Route: 065
     Dates: start: 20191107
  7. JAKAFI [Suspect]
     Active Substance: RUXOLITINIB
     Dosage: UNK
     Route: 048
     Dates: end: 201903
  8. JAKAFI [Suspect]
     Active Substance: RUXOLITINIB
     Dosage: 5 MILLIGRAM, BID
     Route: 065
     Dates: start: 20191107
  9. PEGINTERFERON ALFA-2A. [Concomitant]
     Active Substance: PEGINTERFERON ALFA-2A
     Indication: ESSENTIAL THROMBOCYTHAEMIA
     Dosage: 180 MICROGRAM
     Route: 065
     Dates: start: 20170111, end: 20170116
  10. ASPIRIN [ACETYLSALICYLIC ACID] [Concomitant]
     Active Substance: ASPIRIN
     Indication: ESSENTIAL THROMBOCYTHAEMIA
     Dosage: 81 MILLIGRAM, QD
     Route: 065
     Dates: start: 20140113
  11. HYDROCODONE [Concomitant]
     Active Substance: HYDROCODONE
     Indication: ABDOMINAL PAIN
     Dosage: 1 TABLET PRN
     Route: 065
     Dates: start: 20170720
  12. JAKAFI [Suspect]
     Active Substance: RUXOLITINIB
     Indication: ESSENTIAL THROMBOCYTHAEMIA
     Dosage: 10 MILLIGRAM, QD
     Route: 048
     Dates: start: 201801
  13. WARFARIN [Concomitant]
     Active Substance: WARFARIN
     Indication: THROMBOSIS
  14. OSELTAMIVIR [Concomitant]
     Active Substance: OSELTAMIVIR
     Indication: PROPHYLAXIS
     Dosage: 75 MILLIGRAM, QD
     Route: 065
     Dates: start: 20200121, end: 20200130
  15. JAKAFI [Suspect]
     Active Substance: RUXOLITINIB
     Dosage: 10 MILLIGRAM, BID
     Route: 065
     Dates: start: 20180210, end: 20180404
  16. JAKAFI [Suspect]
     Active Substance: RUXOLITINIB
     Dosage: 10 MILLIGRAM, BID
     Route: 065
     Dates: start: 20190117, end: 20190301
  17. PEGINTERFERON ALFA-2A. [Concomitant]
     Active Substance: PEGINTERFERON ALFA-2A
     Dosage: 90 MICROGRAM
     Route: 065
     Dates: start: 20170307, end: 20180226
  18. JAKAFI [Suspect]
     Active Substance: RUXOLITINIB
     Dosage: 15 MILLIGRAM, BID
     Route: 065
     Dates: start: 20180405, end: 20180510
  19. FIORICET [Concomitant]
     Active Substance: ACETAMINOPHEN\BUTALBITAL\CAFFEINE
     Indication: PAIN
     Dosage: 5/325 MG PRN
     Route: 065
     Dates: start: 20191103, end: 20191107
  20. JAKAFI [Suspect]
     Active Substance: RUXOLITINIB
     Dosage: 15 MILLIGRAM, BID
     Route: 048
  21. JAKAFI [Suspect]
     Active Substance: RUXOLITINIB
     Dosage: 5 MILLIGRAM, BID
     Route: 048
     Dates: start: 20191016, end: 20191024
  22. JAKAFI [Suspect]
     Active Substance: RUXOLITINIB
     Dosage: 10 MILLIGRAM, BID
     Route: 065
     Dates: start: 20180510, end: 20180604
  23. JAKAFI [Suspect]
     Active Substance: RUXOLITINIB
     Dosage: 5 MILLIGRAM, BID
     Route: 065
     Dates: start: 20180604, end: 20180623
  24. PEGINTERFERON ALFA-2A. [Concomitant]
     Active Substance: PEGINTERFERON ALFA-2A
     Dosage: 135 MICROGRAM
     Route: 065
     Dates: start: 20170117, end: 20170306
  25. HYDROCODONE [Concomitant]
     Active Substance: HYDROCODONE
     Indication: HEADACHE

REACTIONS (5)
  - Deep vein thrombosis [Not Recovered/Not Resolved]
  - Rash [Not Recovered/Not Resolved]
  - Paraesthesia [Not Recovered/Not Resolved]
  - Fatigue [Not Recovered/Not Resolved]
  - Headache [Recovered/Resolved]

NARRATIVE: CASE EVENT DATE: 201806
